FAERS Safety Report 5422769-X (Version None)
Quarter: 2007Q3

REPORT INFORMATION
  Report Type: 
  Country: None (occurrence: None)
  Receive Date: 20070822
  Receipt Date: 20070810
  Transmission Date: 20080115
  Serious: Yes (Other)
  Sender: FDA-Public Use
  Company Number: GB-PFIZER INC-2007068121

PATIENT
  Age: 57 Year
  Sex: Male
  Weight: 99.5 kg

DRUGS (6)
  1. VARENICLINE TABLETS [Suspect]
     Indication: SMOKING CESSATION THERAPY
     Route: 048
     Dates: start: 20070718, end: 20070724
  2. ASPIRIN [Concomitant]
     Route: 048
  3. GLICLAZIDE [Concomitant]
     Route: 048
  4. RAMIPRIL [Concomitant]
     Route: 048
  5. ROSIGLITAZONE MALEATE [Concomitant]
     Route: 048
  6. SIMVASTATIN [Concomitant]
     Route: 048

REACTIONS (3)
  - DIABETES MELLITUS INADEQUATE CONTROL [None]
  - HEADACHE [None]
  - NAUSEA [None]
